FAERS Safety Report 6372328-X (Version None)
Quarter: 2009Q3

REPORT INFORMATION
  Report Type: 
  Country: None (occurrence: None)
  Receive Date: 20090924
  Receipt Date: 20081016
  Transmission Date: 20100115
  Serious: No
  Sender: FDA-Public Use
  Company Number: BR-ASTRAZENECA-2008UW23137

PATIENT
  Age: 22 Year
  Sex: Male
  Weight: 63 kg

DRUGS (2)
  1. SEROQUEL [Suspect]
     Indication: BIPOLAR DISORDER
     Route: 048
     Dates: start: 20081007
  2. DEPAKOTE [Concomitant]
     Dates: start: 20081007

REACTIONS (3)
  - DIZZINESS [None]
  - EYE DISORDER [None]
  - MENTAL DISORDER [None]
